FAERS Safety Report 13617238 (Version 1)
Quarter: 2017Q2

REPORT INFORMATION
  Report Type: Spontaneous
  Country: US (occurrence: US)
  Receive Date: 20170606
  Receipt Date: 20170606
  Transmission Date: 20170830
  Serious: No
  Sender: FDA-Public Use
  Company Number: US-SA-2017SA075526

PATIENT
  Age: 94 Year
  Sex: Female

DRUGS (3)
  1. LANTUS SOLOSTAR [Suspect]
     Active Substance: INSULIN GLARGINE
     Indication: TYPE 2 DIABETES MELLITUS
     Dosage: DOSE: 12-14UNITS?DAILY DOSE: 12-14 UNITS
     Route: 065
     Dates: start: 201704
  2. HUMALOG [Concomitant]
     Active Substance: INSULIN LISPRO
     Dosage: SHE TAKES HUMALOG BEFORE MEALS.
  3. SOLOSTAR [Concomitant]
     Active Substance: DEVICE
     Indication: TYPE 2 DIABETES MELLITUS
     Dates: start: 201704

REACTIONS (2)
  - Visual impairment [Unknown]
  - Blood glucose fluctuation [Unknown]

NARRATIVE: CASE EVENT DATE: 201704
